FAERS Safety Report 14714708 (Version 1)
Quarter: 2018Q2

REPORT INFORMATION
  Report Type: Report from Study
  Country: CA (occurrence: CA)
  Receive Date: 20180404
  Receipt Date: 20180404
  Transmission Date: 20180711
  Serious: Yes (Other)
  Sender: FDA-Public Use
  Company Number: CA-TAKEDA-2018MPI003127

PATIENT
  Age: 63 Year
  Sex: Female

DRUGS (1)
  1. IXAZOMIB [Suspect]
     Active Substance: IXAZOMIB
     Indication: PLASMA CELL MYELOMA
     Dosage: 2.3 MG, UNK
     Route: 048
     Dates: start: 20170202

REACTIONS (4)
  - Subretinal fluid [Unknown]
  - Retinal tear [Unknown]
  - Retinal degeneration [Unknown]
  - Retinal detachment [Unknown]

NARRATIVE: CASE EVENT DATE: 20180228
